FAERS Safety Report 9822536 (Version 2)
Quarter: 2014Q1

REPORT INFORMATION
  Report Type: Report from Study
  Country: DE (occurrence: DE)
  Receive Date: 20140116
  Receipt Date: 20140116
  Transmission Date: 20141002
  Serious: Yes (Hospitalization, Other)
  Sender: FDA-Public Use
  Company Number: DE-ROCHE-1113055

PATIENT
  Age: 2 Year
  Sex: Male
  Weight: 10.67 kg

DRUGS (14)
  1. VALGANCICLOVIR [Suspect]
     Indication: ORGAN TRANSPLANT
     Route: 048
     Dates: start: 20081219
  2. DECORTIN H [Suspect]
     Indication: PROPHYLAXIS AGAINST TRANSPLANT REJECTION
     Route: 048
     Dates: start: 20081021
  3. SANDIMMUN OPTORAL [Suspect]
     Indication: PROPHYLAXIS AGAINST TRANSPLANT REJECTION
     Route: 048
     Dates: start: 20081025
  4. CERTICAN [Suspect]
     Indication: PROPHYLAXIS AGAINST TRANSPLANT REJECTION
     Route: 048
     Dates: start: 20081126
  5. THYROXINE [Concomitant]
     Indication: HYPOTHYROIDISM
     Route: 048
     Dates: start: 20081021
  6. SODIUM BICARBONATE 8.4% [Concomitant]
     Indication: METABOLIC ACIDOSIS
     Route: 042
     Dates: start: 20081021
  7. PANTOPRAZOLE [Concomitant]
     Indication: PROPHYLAXIS
     Dosage: 20.0 MFI
     Route: 042
     Dates: start: 20081021
  8. NIFEDIPIN [Concomitant]
     Indication: HYPERTENSION
     Dosage: 18.0 DROPS
     Route: 048
     Dates: start: 20081022
  9. MAGNESIOCARD [Concomitant]
     Indication: BLOOD MAGNESIUM DECREASED
     Route: 048
     Dates: start: 20081024
  10. DIHYDRALAZINE [Concomitant]
     Indication: HYPERTENSION
     Route: 048
     Dates: start: 20081025
  11. RAMIPRIL [Concomitant]
     Indication: HYPERTENSION
     Route: 048
     Dates: start: 20081025
  12. AMPICILLIN [Concomitant]
     Route: 048
     Dates: start: 20090117
  13. TOBRAMYCIN [Concomitant]
     Route: 042
     Dates: start: 20090117
  14. CEFOTAXIM [Concomitant]
     Route: 042
     Dates: start: 20090204

REACTIONS (4)
  - Infection [Recovered/Resolved]
  - Tracheal operation [Unknown]
  - Myopathy [Unknown]
  - Diaphragmatic paralysis [Unknown]
